FAERS Safety Report 9664606 (Version 3)
Quarter: 2013Q4

REPORT INFORMATION
  Report Type: Report from Study
  Country: US (occurrence: US)
  Receive Date: 20131101
  Receipt Date: 20131127
  Transmission Date: 20140711
  Serious: Yes (Life-Threatening, Hospitalization)
  Sender: FDA-Public Use
  Company Number: US-BRISTOL-MYERS SQUIBB COMPANY-19680065

PATIENT
  Age: 17 Year
  Sex: Female

DRUGS (4)
  1. DASATINIB [Suspect]
     Indication: ACUTE LYMPHOCYTIC LEUKAEMIA
     Route: 048
     Dates: start: 20130524
  2. ETOPOSIDE PHOSPHATE [Suspect]
     Dates: start: 20131012, end: 20131014
  3. CYTARABINE [Suspect]
     Dates: start: 20131009, end: 20131011
  4. DEXAMETHASONE [Suspect]
     Dates: start: 20131009, end: 20131013

REACTIONS (3)
  - Pancytopenia [Recovered/Resolved]
  - Sepsis [Recovered/Resolved]
  - Hypotension [Recovered/Resolved]
